FAERS Safety Report 7049519-8 (Version None)
Quarter: 2010Q4

REPORT INFORMATION
  Report Type: 
  Country: None (occurrence: None)
  Receive Date: 20101018
  Receipt Date: 20101007
  Transmission Date: 20110411
  Serious: Yes (Hospitalization, Other)
  Sender: FDA-Public Use
  Company Number: JP-JNJFOC-20101002228

PATIENT
  Sex: Female
  Weight: 76.3 kg

DRUGS (10)
  1. GOLIMUMAB [Suspect]
     Indication: RHEUMATOID ARTHRITIS
     Route: 058
  2. GOLIMUMAB [Suspect]
     Route: 058
  3. PLACEBO [Suspect]
     Indication: RHEUMATOID ARTHRITIS
     Route: 058
  4. HYPEN [Concomitant]
     Indication: RHEUMATOID ARTHRITIS
     Route: 048
  5. TIEKAPTO [Concomitant]
     Indication: GASTROINTESTINAL DISORDER THERAPY
     Route: 048
  6. TOWARAT L [Concomitant]
     Indication: HYPERTENSION
     Route: 048
  7. PREDNISOLONE [Concomitant]
     Indication: RHEUMATOID ARTHRITIS
     Route: 048
  8. FOLIAMIN [Concomitant]
     Indication: HEPATIC FUNCTION ABNORMAL
     Route: 048
  9. RHEUMATREX [Concomitant]
     Indication: RHEUMATOID ARTHRITIS
     Route: 048
  10. WARFARIN SODIUM [Concomitant]
     Indication: VENOUS THROMBOSIS LIMB
     Route: 048

REACTIONS (1)
  - CELLULITIS [None]
